FAERS Safety Report 5682434-0 (Version None)
Quarter: 2008Q1

REPORT INFORMATION
  Report Type: 
  Country: None (occurrence: None)
  Receive Date: 20080326
  Receipt Date: 20080326
  Transmission Date: 20080703
  Serious: Yes (Hospitalization)
  Sender: FDA-Public Use
  Company Number: None

PATIENT
  Sex: Female
  Weight: 89.9 kg

DRUGS (2)
  1. FLUOROURACIL [Suspect]
     Dosage: 7880 MG
  2. MITOMYCIN [Suspect]
     Dosage: 19.7 MG

REACTIONS (1)
  - NEUTROPHIL COUNT DECREASED [None]
